FAERS Safety Report 8356231-1 (Version None)
Quarter: 2012Q2

REPORT INFORMATION
  Report Type: 
  Country: None (occurrence: None)
  Receive Date: 20120514
  Receipt Date: 20120509
  Transmission Date: 20120825
  Serious: Yes (Life-Threatening, Hospitalization)
  Sender: FDA-Public Use
  Company Number: US-US-EMD SERONO, INC.-7128769

PATIENT
  Sex: Male
  Weight: 66 kg

DRUGS (3)
  1. REBIF [Suspect]
     Indication: MULTIPLE SCLEROSIS
     Route: 058
     Dates: start: 20020826, end: 20120401
  2. REBIF [Suspect]
     Route: 058
     Dates: start: 20120430
  3. BACLOFEN [Concomitant]
     Indication: MUSCLE SPASMS

REACTIONS (16)
  - URINARY TRACT INFECTION [None]
  - ARTHRITIS [None]
  - MYOCARDIAL INFARCTION [None]
  - CORONARY ARTERY OCCLUSION [None]
  - CLOSTRIDIAL INFECTION [None]
  - CORONARY ARTERY STENOSIS [None]
  - NEPHROLITHIASIS [None]
  - INCISION SITE INFECTION [None]
  - SCAR [None]
  - INCISION SITE COMPLICATION [None]
  - SEPSIS [None]
  - PNEUMONIA ASPIRATION [None]
  - EJECTION FRACTION ABNORMAL [None]
  - RENAL CYST [None]
  - CONVULSION [None]
  - CYSTITIS [None]
